FAERS Safety Report 5828094-7 (Version None)
Quarter: 2008Q3

REPORT INFORMATION
  Report Type: 
  Country: None (occurrence: None)
  Receive Date: 20080730
  Receipt Date: 20070705
  Transmission Date: 20090109
  Serious: No
  Sender: FDA-Public Use
  Company Number: A0661926A

PATIENT
  Age: 63 Year
  Sex: Male

DRUGS (6)
  1. ZANTAC [Suspect]
     Dosage: 150MG AS REQUIRED
     Route: 048
  2. PRILOSEC [Concomitant]
  3. BENICAR [Concomitant]
  4. VYTORIN [Concomitant]
  5. OMACOR [Concomitant]
  6. VERAPAMIL [Concomitant]

REACTIONS (1)
  - EXPIRED DRUG ADMINISTERED [None]
